FAERS Safety Report 4518071-0 (Version None)
Quarter: 2004Q4

REPORT INFORMATION
  Report Type: 
  Country: None (occurrence: None)
  Receive Date: 20041130
  Receipt Date: 20041115
  Transmission Date: 20050328
  Serious: Yes (Hospitalization)
  Sender: FDA-Public Use
  Company Number: 204489

PATIENT
  Sex: Female

DRUGS (4)
  1. AVONEX [Suspect]
     Indication: MULTIPLE SCLEROSIS
     Dosage: 30 UG; QW; IM
     Route: 030
     Dates: start: 19990101, end: 20030801
  2. AVONEX [Suspect]
     Indication: MULTIPLE SCLEROSIS
     Dosage: 30 UG; QW; IM
     Route: 030
     Dates: start: 20030801
  3. ARICEPT [Concomitant]
  4. DEPO-PROVERA [Concomitant]

REACTIONS (12)
  - ASTHENIA [None]
  - BLADDER SPASM [None]
  - DEPRESSION [None]
  - FATIGUE [None]
  - LEIOMYOMA [None]
  - MULTIPLE SCLEROSIS [None]
  - NYSTAGMUS [None]
  - OSTEOPOROSIS [None]
  - OVARIAN CYST [None]
  - URINARY TRACT INFECTION [None]
  - UTERINE HAEMORRHAGE [None]
  - UTERINE POLYP [None]
